FAERS Safety Report 4704309-3 (Version None)
Quarter: 2005Q2

REPORT INFORMATION
  Report Type: 
  Country: None (occurrence: None)
  Receive Date: 20050630
  Receipt Date: 20050624
  Transmission Date: 20051028
  Serious: Yes (Hospitalization)
  Sender: FDA-Public Use
  Company Number: 2005PK01091

PATIENT
  Age: 38 Year
  Sex: Female

DRUGS (5)
  1. SEROQUEL [Suspect]
     Route: 048
     Dates: start: 20050107, end: 20050108
  2. SEROQUEL [Suspect]
     Route: 048
     Dates: start: 20050109, end: 20050113
  3. SEROQUEL [Suspect]
     Route: 048
     Dates: start: 20050114, end: 20050119
  4. SEROQUEL [Suspect]
     Route: 048
     Dates: start: 20050120, end: 20050124
  5. SEROQUEL [Suspect]
     Dosage: 700 MG GRADUALLY  WITHDRAWN
     Route: 048
     Dates: start: 20050125, end: 20050221

REACTIONS (1)
  - LEUKOPENIA [None]
